FAERS Safety Report 17629943 (Version 1)
Quarter: 2020Q2

REPORT INFORMATION
  Report Type: Spontaneous
  Country: US (occurrence: US)
  Receive Date: 20200403
  Receipt Date: 20200403
  Transmission Date: 20200713
  Serious: No
  Sender: FDA-Public Use
  Company Number: None

PATIENT
  Sex: Female
  Weight: 76.5 kg

DRUGS (4)
  1. MULTI-VITAMINS [Concomitant]
  2. ELURYNG [Suspect]
     Active Substance: ETHINYL ESTRADIOL\ETONOGESTREL
     Indication: MENORRHAGIA
     Dosage: ?          QUANTITY:1 RING;OTHER FREQUENCY:FOR 21 DAYS;?
     Route: 067
     Dates: start: 20200127, end: 20200403
  3. ZOLOFT 125MG [Concomitant]
  4. ELURYNG [Suspect]
     Active Substance: ETHINYL ESTRADIOL\ETONOGESTREL
     Indication: OVARIAN CYST
     Dosage: ?          QUANTITY:1 RING;OTHER FREQUENCY:FOR 21 DAYS;?
     Route: 067
     Dates: start: 20200127, end: 20200403

REACTIONS (3)
  - Product substitution issue [None]
  - Menorrhagia [None]
  - Vaginal haemorrhage [None]
